FAERS Safety Report 4677570-1 (Version None)
Quarter: 2005Q2

REPORT INFORMATION
  Report Type: 
  Country: None (occurrence: None)
  Receive Date: 20050526
  Receipt Date: 20050526
  Transmission Date: 20051028
  Serious: Yes (Hospitalization)
  Sender: FDA-Public Use
  Company Number: None

PATIENT
  Age: 57 Year
  Sex: Male
  Weight: 70.7611 kg

DRUGS (9)
  1. INSULIN [Suspect]
     Indication: DIABETES MELLITUS
     Dosage: SEE IMAGE
  2. EFAVIRENZ [Concomitant]
  3. FLUVASTATIN [Concomitant]
  4. FOSINOPRIL [Concomitant]
  5. GEMFIBROZIL [Concomitant]
  6. LAMIVUDINE AND ZIDOVUDINE [Concomitant]
  7. LORAZEPAM [Concomitant]
  8. MIRTAZAPINE [Concomitant]
  9. PAROXETINE HCL [Concomitant]

REACTIONS (3)
  - BLOOD GLUCOSE DECREASED [None]
  - ORAL INTAKE REDUCED [None]
  - POISONING [None]
